FAERS Safety Report 10437712 (Version 1)
Quarter: 2014Q3

REPORT INFORMATION
  Report Type: Spontaneous
  Country: US (occurrence: US)
  Receive Date: 20140908
  Receipt Date: 20140908
  Transmission Date: 20150326
  Serious: No
  Sender: FDA-Public Use
  Company Number: US-BRISTOL-MYERS SQUIBB COMPANY-19735604

PATIENT
  Age: 49 Year
  Sex: Female
  Weight: 66.21 kg

DRUGS (3)
  1. VYVANSE [Concomitant]
     Active Substance: LISDEXAMFETAMINE DIMESYLATE
  2. XANAX [Concomitant]
     Active Substance: ALPRAZOLAM
  3. ABILIFY [Suspect]
     Active Substance: ARIPIPRAZOLE
     Indication: DEPRESSION

REACTIONS (4)
  - Weight increased [Unknown]
  - Fatigue [Unknown]
  - Menstruation irregular [Unknown]
  - Wrong technique in drug usage process [Unknown]
